FAERS Safety Report 15543278 (Version 1)
Quarter: 2018Q4

REPORT INFORMATION
  Report Type: Spontaneous
  Country: FR (occurrence: FR)
  Receive Date: 20181023
  Receipt Date: 20181023
  Transmission Date: 20190205
  Serious: Yes (Hospitalization, Congenital Anomaly)
  Sender: FDA-Public Use
  Company Number: FR-PFIZER INC-2018425518

PATIENT
  Sex: Female

DRUGS (11)
  1. SOLU-MEDROL [Suspect]
     Active Substance: METHYLPREDNISOLONE SODIUM SUCCINATE
     Dosage: 1 G, 1X/DAY
     Route: 064
     Dates: start: 20170801, end: 20170802
  2. SOLU-MEDROL [Suspect]
     Active Substance: METHYLPREDNISOLONE SODIUM SUCCINATE
     Indication: RELAPSING MULTIPLE SCLEROSIS
     Dosage: 1 G, 1X/DAY
     Route: 064
     Dates: start: 20170721, end: 20170723
  3. SOLU-MEDROL [Suspect]
     Active Substance: METHYLPREDNISOLONE SODIUM SUCCINATE
     Dosage: 500 MG, 1X/DAY
     Route: 064
     Dates: start: 20170731, end: 20170731
  4. AMOXICILLINE SODIUM [Suspect]
     Active Substance: AMOXICILLIN SODIUM
     Dosage: UNK
  5. ADALATE [Suspect]
     Active Substance: NIFEDIPINE
     Indication: THREATENED LABOUR
     Dosage: 80MG 1XDAY
     Route: 064
     Dates: start: 20170727, end: 20170728
  6. AMOXICILLINE SODIUM [Suspect]
     Active Substance: AMOXICILLIN SODIUM
     Indication: ANTIBIOTIC PROPHYLAXIS
     Dosage: 3 G, 1X/DAY
     Dates: start: 20170727, end: 20170802
  7. TRACTOCILE [Suspect]
     Active Substance: ATOSIBAN
     Indication: THREATENED LABOUR
     Dosage: UNKNOWN
     Route: 064
     Dates: start: 20170725, end: 20170726
  8. TYSABRI [Suspect]
     Active Substance: NATALIZUMAB
     Dosage: 300 MG, 1X/DAY
     Route: 064
     Dates: start: 20170902, end: 20170902
  9. CELESTENE [BETAMETHASONE ACETATE;DEXAMETHASONE SODIUM PHOSPHATE] [Suspect]
     Active Substance: BETAMETHASONE ACETATE\DEXAMETHASONE SODIUM PHOSPHATE
     Indication: THREATENED LABOUR
     Route: 064
     Dates: start: 20170725, end: 20170726
  10. TYSABRI [Suspect]
     Active Substance: NATALIZUMAB
     Indication: RELAPSING-REMITTING MULTIPLE SCLEROSIS
     Dosage: 300 MG, MONTHLY
     Route: 064
     Dates: start: 20170120, end: 20170120
  11. TYSABRI [Suspect]
     Active Substance: NATALIZUMAB
     Indication: RELAPSING MULTIPLE SCLEROSIS
     Dosage: 300 MG, SINGLE
     Route: 064
     Dates: start: 20170802, end: 20170802

REACTIONS (3)
  - Maternal exposure during pregnancy [Unknown]
  - Inguinal hernia [Recovered/Resolved]
  - Low birth weight baby [Recovering/Resolving]

NARRATIVE: CASE EVENT DATE: 20170930
